FAERS Safety Report 16768113 (Version 7)
Quarter: 2019Q4

REPORT INFORMATION
  Report Type: Spontaneous
  Country: US (occurrence: US)
  Receive Date: 20190903
  Receipt Date: 20191105
  Transmission Date: 20200122
  Serious: No
  Sender: FDA-Public Use
  Company Number: US-PFIZER INC-2019375770

PATIENT
  Age: 54 Year
  Sex: Male
  Weight: 115.65 kg

DRUGS (1)
  1. LYRICA [Suspect]
     Active Substance: PREGABALIN
     Indication: NEUROPATHY PERIPHERAL
     Dosage: 150 MG, ONE CAPSULE ONCE OR TWICE A DAY

REACTIONS (2)
  - Intentional product use issue [Unknown]
  - Fall [Unknown]

NARRATIVE: CASE EVENT DATE: 20190830
